FAERS Safety Report 8082234-0 (Version None)
Quarter: 2012Q1

REPORT INFORMATION
  Report Type: 
  Country: None (occurrence: None)
  Receive Date: 20120127
  Receipt Date: 20110228
  Transmission Date: 20120608
  Serious: No
  Sender: FDA-Public Use
  Company Number: US-ABBOTT-11P-163-0708268-00

PATIENT
  Age: 58 Year
  Sex: Female

DRUGS (22)
  1. ONDANSETRON HCL [Concomitant]
     Indication: NAUSEA
  2. HUMIRA [Suspect]
     Indication: CROHN'S DISEASE
  3. PREDNISONE TAB [Concomitant]
     Indication: CROHN'S DISEASE
     Route: 048
  4. IMURAN [Concomitant]
     Indication: CROHN'S DISEASE
     Route: 048
  5. TOPAMAX [Concomitant]
     Indication: MIGRAINE
     Route: 048
  6. VOLTAREN [Concomitant]
     Indication: PAIN
     Dosage: UP TO 3 DAILY AS NEEDED
     Route: 048
  7. DIOVAN [Concomitant]
     Indication: HYPERTENSION
     Route: 048
  8. POTASSIUM [Concomitant]
     Indication: SUPPLEMENTATION THERAPY
     Route: 048
  9. VITAMIN B-12 [Concomitant]
     Indication: PRODUCT USED FOR UNKNOWN INDICATION
     Dosage: MONTHLY
  10. EFFEXOR [Concomitant]
     Indication: ANXIETY
     Route: 048
  11. VITAMIN D [Concomitant]
     Indication: PRODUCT USED FOR UNKNOWN INDICATION
     Route: 048
  12. PEPCID [Concomitant]
     Indication: PROPHYLAXIS
     Dosage: AT BEDTIME
     Route: 048
  13. BONIVA [Concomitant]
     Indication: BONE DISORDER
     Dosage: MONTHLY
  14. NAPROXEN (ALEVE) [Concomitant]
     Indication: PRODUCT USED FOR UNKNOWN INDICATION
  15. HUMIRA [Suspect]
     Indication: RHEUMATOID ARTHRITIS
     Dates: start: 20110222
  16. XANAX [Concomitant]
     Indication: ANXIETY
     Route: 048
  17. NEXIUM [Concomitant]
     Indication: PROPHYLAXIS
     Route: 048
  18. IMITREX [Concomitant]
     Indication: MIGRAINE
  19. LUNESTA [Concomitant]
     Indication: INSOMNIA
     Route: 048
  20. CALCIUM [Concomitant]
     Indication: PRODUCT USED FOR UNKNOWN INDICATION
     Route: 048
  21. WELCHOL [Concomitant]
     Indication: DIARRHOEA
     Route: 048
  22. PERCOCET [Concomitant]
     Indication: PAIN

REACTIONS (1)
  - APHTHOUS STOMATITIS [None]
